FAERS Safety Report 8041678-3 (Version None)
Quarter: 2012Q1

REPORT INFORMATION
  Report Type: 
  Country: None (occurrence: None)
  Receive Date: 20120112
  Receipt Date: 20120104
  Transmission Date: 20120608
  Serious: Yes (Other)
  Sender: FDA-Public Use
  Company Number: DE-ELI_LILLY_AND_COMPANY-DE201201001123

PATIENT

DRUGS (3)
  1. ZYPREXA [Suspect]
     Dosage: 10 MG, QD
     Route: 064
     Dates: end: 20110601
  2. FOLIC ACID [Concomitant]
     Dosage: UNK
     Route: 064
  3. LEVOTHYROXINE SODIUM [Concomitant]
     Dosage: 75 UG, UNK
     Route: 064

REACTIONS (2)
  - FOETAL EXPOSURE DURING PREGNANCY [None]
  - SEPSIS NEONATAL [None]
